FAERS Safety Report 4384786-0 (Version None)
Quarter: 2004Q2

REPORT INFORMATION
  Report Type: 
  Country: None (occurrence: None)
  Receive Date: 20040621
  Receipt Date: 20040608
  Transmission Date: 20050107
  Serious: Yes (Death, Hospitalization)
  Sender: FDA-Public Use
  Company Number: 04-0042PO

PATIENT
  Age: 15 Year
  Sex: Female

DRUGS (2)
  1. PONTAL (MEFENAMIC ACID) / PONSTEL NDA 15-034 [Suspect]
     Dosage: 10 CAPSULES PO
     Route: 048
  2. ISTIN (AMLODIPINE) [Suspect]
     Dosage: 14 TABLETS PO
     Route: 048

REACTIONS (9)
  - COMA [None]
  - CYANOSIS [None]
  - DYSPNOEA [None]
  - HEART RATE INCREASED [None]
  - HYPOTENSION [None]
  - MULTIPLE DRUG OVERDOSE INTENTIONAL [None]
  - MUSCLE SPASMS [None]
  - PULMONARY OEDEMA [None]
  - RESPIRATORY ARREST [None]
